FAERS Safety Report 7622431-9 (Version None)
Quarter: 2011Q3

REPORT INFORMATION
  Report Type: 
  Country: None (occurrence: None)
  Receive Date: 20110711
  Receipt Date: 20110627
  Transmission Date: 20111222
  Serious: Yes (Hospitalization, Other)
  Sender: FDA-Public Use
  Company Number: AUR-APL-2011-03726

PATIENT
  Age: 29 Year
  Sex: Female

DRUGS (10)
  1. HYDROCORTONE [Suspect]
     Indication: ANGIOEDEMA
     Dosage: 150 MG (50 MG, 3 IN 1 D), INTRAVENOUS
     Route: 042
  2. PREDNISOLONE [Concomitant]
  3. AMOXICILLIN [Suspect]
     Indication: LOWER RESPIRATORY TRACT INFECTION
  4. TRIMETHOPRIM + SULFAMETHOXAZOLE [Suspect]
     Indication: PRODUCT USED FOR UNKNOWN INDICATION
  5. DEXAMETHASONE [Concomitant]
  6. COMBIVIR [Suspect]
     Indication: PRODUCT USED FOR UNKNOWN INDICATION
  7. NEVIRAPINE [Suspect]
     Indication: PRODUCT USED FOR UNKNOWN INDICATION
  8. FLUCONAZOLE [Suspect]
     Indication: PRODUCT USED FOR UNKNOWN INDICATION
  9. ACYCLOVIR [Suspect]
     Indication: NECROTISING RETINITIS
     Dosage: SEE IMAGE
     Route: 042
  10. FAMCICLOVIR [Suspect]
     Indication: PRODUCT USED FOR UNKNOWN INDICATION
     Dosage: ORAL
     Route: 048

REACTIONS (15)
  - HAEMOGLOBIN DECREASED [None]
  - DRUG HYPERSENSITIVITY [None]
  - RASH MACULO-PAPULAR [None]
  - RASH ERYTHEMATOUS [None]
  - LOWER RESPIRATORY TRACT INFECTION [None]
  - HERPES SIMPLEX SEROLOGY POSITIVE [None]
  - VARICELLA VIRUS TEST POSITIVE [None]
  - CYTOMEGALOVIRUS TEST POSITIVE [None]
  - VISION BLURRED [None]
  - NECROTISING RETINITIS [None]
  - CHEST DISCOMFORT [None]
  - ANGIOEDEMA [None]
  - CD4 LYMPHOCYTES DECREASED [None]
  - SKIN DISORDER [None]
  - CATARACT [None]
